FAERS Safety Report 9067336 (Version 1)
Quarter: 2013Q1

REPORT INFORMATION
  Report Type: Spontaneous
  Country: US (occurrence: US)
  Receive Date: 20130202
  Receipt Date: 20130202
  Transmission Date: 20140127
  Serious: Yes (Other)
  Sender: FDA-Public Use
  Company Number: US-AMGEN-USASP2012072338

PATIENT
  Age: 45 Year
  Sex: Female
  Weight: 95.24 kg

DRUGS (12)
  1. ENBREL [Suspect]
     Indication: PSORIASIS
     Dosage: 50 MG, QWK
     Route: 058
     Dates: start: 201205, end: 20130122
  2. XYZAL [Concomitant]
     Indication: HYPERSENSITIVITY
     Dosage: 5 MG, QD
     Route: 048
  3. DEXEDRINE [Concomitant]
     Indication: ATTENTION DEFICIT/HYPERACTIVITY DISORDER
     Dosage: UNK
     Route: 048
  4. ADAPALENE [Concomitant]
     Indication: ACNE
     Dosage: 0.1 UNK, QD
     Route: 061
  5. CLOBETASOL [Concomitant]
     Indication: PSORIASIS
     Dosage: 0.05 %, QD-BID-PRN
     Route: 061
  6. CLINDAMYCIN [Concomitant]
     Indication: ACNE
     Dosage: 1 %, QD
     Route: 061
  7. TACLONEX [Concomitant]
     Indication: PSORIASIS
     Dosage: QD-BID-PRN
     Route: 061
  8. VALACYCLOVIR HYDROCHLORIDE [Concomitant]
     Indication: HERPES SIMPLEX
     Dosage: 2 G, BID
     Route: 048
  9. PROZAC [Concomitant]
     Indication: DEPRESSION
     Dosage: UNK
     Route: 048
  10. NORTRIPTYLINE [Concomitant]
     Dosage: UNK
     Route: 048
  11. LAMICTAL [Concomitant]
     Dosage: UNK
     Route: 048
  12. KLONOPIN [Concomitant]
     Dosage: UNK
     Route: 048

REACTIONS (9)
  - Muscle spasms [Recovered/Resolved]
  - Fall [Recovered/Resolved]
  - Head injury [Recovered/Resolved]
  - Contusion [Recovered/Resolved]
  - Migraine [Recovered/Resolved]
  - Headache [Not Recovered/Not Resolved]
  - Visual impairment [Recovered/Resolved]
  - Folliculitis [Recovered/Resolved]
  - Injection site reaction [Recovered/Resolved]
